FAERS Safety Report 18076509 (Version 1)
Quarter: 2020Q3

REPORT INFORMATION
  Report Type: Report from Study
  Country: CA (occurrence: CA)
  Receive Date: 20200728
  Receipt Date: 20200728
  Transmission Date: 20201103
  Serious: Yes (Other)
  Sender: FDA-Public Use
  Company Number: CA-ACCORD-192437

PATIENT
  Sex: Female

DRUGS (6)
  1. IBUPROFEN. [Concomitant]
     Active Substance: IBUPROFEN
     Dosage: NOT SPECIFIED
  2. METHOTREXATE. [Suspect]
     Active Substance: METHOTREXATE
     Indication: PRODUCT USED FOR UNKNOWN INDICATION
     Route: 065
  3. COSENTYX [Suspect]
     Active Substance: SECUKINUMAB
     Indication: ANKYLOSING SPONDYLITIS
     Dosage: 1 EVERY 1 MONTHS
     Route: 058
  4. NAPROXEN. [Concomitant]
     Active Substance: NAPROXEN
     Dosage: NOT SPECIFIED
  5. TYLENOL [Concomitant]
     Active Substance: ACETAMINOPHEN
     Dosage: ARTHRITIS PAIN 8H, TABLET (EXTENDED? RELEASE)
  6. ENBREL [Concomitant]
     Active Substance: ETANERCEPT
     Dosage: NOT SPECIFIED
     Route: 065

REACTIONS (4)
  - Therapeutic response decreased [Unknown]
  - Pneumonia [Unknown]
  - Drug ineffective [Unknown]
  - Ankylosing spondylitis [Unknown]
